FAERS Safety Report 23668877 (Version 2)
Quarter: 2024Q2

REPORT INFORMATION
  Report Type: Spontaneous
  Country: US (occurrence: US)
  Receive Date: 20240325
  Receipt Date: 20240429
  Transmission Date: 20240716
  Serious: No
  Sender: FDA-Public Use
  Company Number: US-BRISTOL-MYERS SQUIBB COMPANY-2024-047234

PATIENT
  Age: 82 Year
  Sex: Female

DRUGS (1)
  1. REVLIMID [Suspect]
     Active Substance: LENALIDOMIDE
     Indication: Amyloidosis
     Route: 048
     Dates: start: 20240322

REACTIONS (5)
  - Asthenia [Unknown]
  - Pain [Unknown]
  - Off label use [Unknown]
  - Peripheral swelling [Unknown]
  - Gait disturbance [Unknown]
